FAERS Safety Report 5068602-X (Version None)
Quarter: 2006Q3

REPORT INFORMATION
  Report Type: 
  Country: None (occurrence: None)
  Receive Date: 20060802
  Receipt Date: 20051229
  Transmission Date: 20061208
  Serious: Yes (Hospitalization, Other)
  Sender: FDA-Public Use
  Company Number: US-BRISTOL-MYERS SQUIBB COMPANY-13231899

PATIENT
  Age: 89 Year
  Sex: Female

DRUGS (4)
  1. COUMADIN [Suspect]
     Indication: ATRIAL FIBRILLATION
  2. AVELOX [Suspect]
     Indication: BRONCHITIS ACUTE
     Route: 048
  3. DIGOXIN [Suspect]
     Indication: ATRIAL FIBRILLATION
  4. LASIX [Suspect]
     Indication: CARDIAC FAILURE CONGESTIVE

REACTIONS (2)
  - JAUNDICE [None]
  - PANCREATITIS [None]
